FAERS Safety Report 9845553 (Version 1)
Quarter: 2014Q1

REPORT INFORMATION
  Report Type: Spontaneous
  Country: US (occurrence: US)
  Receive Date: 20140127
  Receipt Date: 20140127
  Transmission Date: 20141002
  Serious: No
  Sender: FDA-Public Use
  Company Number: US-PFIZER INC-2014019798

PATIENT
  Sex: Female
  Weight: 85 kg

DRUGS (2)
  1. SPIRONOLACTONE [Suspect]
     Dosage: UNK
     Route: 048
     Dates: start: 201309
  2. TIROSINT [Concomitant]
     Indication: HYPOTHYROIDISM
     Dosage: 50 UG, UNK
     Route: 048
     Dates: start: 201309

REACTIONS (1)
  - Fatigue [Unknown]
